FAERS Safety Report 9962663 (Version 1)
Quarter: 2014Q1

REPORT INFORMATION
  Report Type: Report from Study
  Country: US (occurrence: US)
  Receive Date: 20140305
  Receipt Date: 20140305
  Transmission Date: 20141002
  Serious: No
  Sender: FDA-Public Use
  Company Number: US-ABBVIE-13P-163-1112543-00

PATIENT
  Age: 60 Year
  Sex: Male

DRUGS (6)
  1. HUMIRA [Suspect]
     Indication: PSORIASIS
     Dates: start: 201304, end: 201304
  2. HUMIRA [Suspect]
     Dosage: DAY 8
  3. COZAAR [Concomitant]
     Indication: HYPERTENSION
  4. RED RICE YEAST [Concomitant]
     Indication: VITAMIN SUPPLEMENTATION
  5. VITAMIN D3 [Concomitant]
     Indication: VITAMIN SUPPLEMENTATION
  6. FLAX [Concomitant]
     Indication: VITAMIN SUPPLEMENTATION

REACTIONS (1)
  - Psoriasis [Not Recovered/Not Resolved]
